FAERS Safety Report 21859286 (Version 1)
Quarter: 2023Q1

REPORT INFORMATION
  Report Type: Spontaneous
  Country: US (occurrence: US)
  Receive Date: 20230113
  Receipt Date: 20230113
  Transmission Date: 20230418
  Serious: No
  Sender: FDA-Public Use
  Company Number: US-BRISTOL-MYERS SQUIBB COMPANY-2023-005551

PATIENT
  Age: 48 Year
  Sex: Female

DRUGS (2)
  1. ORENCIA [Suspect]
     Active Substance: ABATACEPT
     Indication: Rheumatoid arthritis
     Route: 058
     Dates: start: 20220803
  2. PREDNISONE [Concomitant]
     Active Substance: PREDNISONE
     Indication: Product used for unknown indication

REACTIONS (7)
  - Fatigue [Unknown]
  - Inflammation [Unknown]
  - Back pain [Unknown]
  - Ocular hyperaemia [Unknown]
  - Rash [Unknown]
  - Drug ineffective [Unknown]
  - Neck pain [Unknown]
